FAERS Safety Report 10023551 (Version 2)
Quarter: 2014Q4

REPORT INFORMATION
  Report Type: Spontaneous
  Country: JP (occurrence: None)
  Receive Date: 20140106
  Receipt Date: 20141229
  Transmission Date: 20150528
  Serious: Yes (Hospitalization)
  Sender: FDA-Public Use
  Company Number: JP-RRD-13-00038

PATIENT
  Age: 10 Month
  Sex: Male
  Weight: 8.3 kg

DRUGS (11)
  1. REMINARON (GABEXATE MESILATE) [Concomitant]
  2. COSMEGEN [Suspect]
     Active Substance: DACTINOMYCIN
     Indication: NEPHROBLASTOMA
     Route: 042
     Dates: start: 20080104, end: 20080104
  3. ONCOVIN [Suspect]
     Active Substance: VINCRISTINE SULFATE
     Indication: NEPHROBLASTOMA
     Route: 042
     Dates: start: 20080104, end: 20080111
  4. KENKETSU VENILON-I [Concomitant]
  5. FIRSTCIN [Concomitant]
     Active Substance: CEFOZOPRAN HYDROCHLORIDE
  6. DALTEPARIN NA (DALTEPARIN SODIUM) [Concomitant]
  7. PLATELET (CONCENTRATES (PLATELETS, CONCENTRATED) [Concomitant]
  8. ZOFRAN (ONDANSETRON) [Concomitant]
  9. SOLU-CORTEF [Concomitant]
     Active Substance: HYDROCORTISONE SODIUM SUCCINATE
  10. VICCLOX (ACICLOVIR) [Concomitant]
  11. GASTER [Concomitant]
     Active Substance: FAMOTIDINE

REACTIONS (3)
  - Venoocclusive liver disease [None]
  - Histiocytosis haematophagic [None]
  - Pleural effusion [None]

NARRATIVE: CASE EVENT DATE: 20081101
